FAERS Safety Report 15777449 (Version 3)
Quarter: 2019Q3

REPORT INFORMATION
  Report Type: Report from Study
  Country: US (occurrence: US)
  Receive Date: 20181231
  Receipt Date: 20190701
  Transmission Date: 20191004
  Serious: No
  Sender: FDA-Public Use
  Company Number: US-CLOVIS ONCOLOGY-CLO-2018-001916

PATIENT
  Age: 86 Year
  Sex: Female

DRUGS (1)
  1. RUBRACA [Suspect]
     Active Substance: RUCAPARIB CAMSYLATE
     Indication: OVARIAN CANCER
     Dosage: 600 MG, BID
     Route: 048
     Dates: start: 20181206

REACTIONS (9)
  - Diarrhoea [Recovered/Resolved]
  - Product dose omission [Unknown]
  - Asthenia [Unknown]
  - Hunger [Unknown]
  - Tumour marker increased [Unknown]
  - Nausea [Recovered/Resolved]
  - Nausea [Recovered/Resolved]
  - Nausea [Not Recovered/Not Resolved]
  - Early satiety [Recovering/Resolving]

NARRATIVE: CASE EVENT DATE: 201812
